FAERS Safety Report 7031963-6 (Version None)
Quarter: 2010Q4

REPORT INFORMATION
  Report Type: 
  Country: None (occurrence: None)
  Receive Date: 20101007
  Receipt Date: 20100924
  Transmission Date: 20110411
  Serious: Yes (Hospitalization)
  Sender: FDA-Public Use
  Company Number: FR-ELI_LILLY_AND_COMPANY-FR201009007123

PATIENT
  Sex: Female

DRUGS (1)
  1. CYMBALTA [Suspect]
     Indication: AGORAPHOBIA
     Dosage: 60 MG, DAILY (1/D)
     Route: 048

REACTIONS (3)
  - EOSINOPHILIC PNEUMONIA [None]
  - OFF LABEL USE [None]
  - RESPIRATORY DISTRESS [None]
